FAERS Safety Report 19411004 (Version 1)
Quarter: 2021Q2

REPORT INFORMATION
  Report Type: Spontaneous
  Country: US (occurrence: US)
  Receive Date: 20210614
  Receipt Date: 20210614
  Transmission Date: 20210717
  Serious: Yes (Hospitalization)
  Sender: FDA-Public Use
  Company Number: US-VIFOR (INTERNATIONAL) INC.-VIT-2021-05090

PATIENT
  Age: 37 Year
  Sex: Female
  Weight: 51.2 kg

DRUGS (3)
  1. VENOFER [Suspect]
     Active Substance: IRON SUCROSE
     Indication: IRON DEFICIENCY
     Dosage: 1ST DOSE
     Route: 040
     Dates: start: 20210408
  2. VENOFER [Suspect]
     Active Substance: IRON SUCROSE
     Dosage: 11TH DOSE
     Route: 040
     Dates: start: 20210525
  3. MIRCERA [Suspect]
     Active Substance: METHOXY POLYETHYLENE GLYCOL-EPOETIN BETA
     Indication: NEPHROGENIC ANAEMIA
     Route: 040
     Dates: start: 20210506, end: 20210525

REACTIONS (3)
  - Drug hypersensitivity [Unknown]
  - Back disorder [Recovered/Resolved]
  - Nausea [Recovered/Resolved]

NARRATIVE: CASE EVENT DATE: 20210525
